FAERS Safety Report 4490804-1 (Version None)
Quarter: 2004Q4

REPORT INFORMATION
  Report Type: 
  Country: None (occurrence: None)
  Receive Date: 20041102
  Receipt Date: 20041021
  Transmission Date: 20050328
  Serious: Yes (Death)
  Sender: FDA-Public Use
  Company Number: ES-ROCHE-384083

PATIENT
  Age: 38 Year
  Sex: Male

DRUGS (1)
  1. PEG-INTERFERON A-2A (RO 25-8310) [Suspect]
     Indication: HEPATITIS
     Route: 058
     Dates: start: 20040116, end: 20040614

REACTIONS (12)
  - ACUTE ABDOMEN [None]
  - ALANINE AMINOTRANSFERASE INCREASED [None]
  - ASPARTATE AMINOTRANSFERASE INCREASED [None]
  - BLOOD ALKALINE PHOSPHATASE INCREASED [None]
  - DIARRHOEA [None]
  - ESCHERICHIA SEPSIS [None]
  - GAMMA-GLUTAMYLTRANSFERASE INCREASED [None]
  - HEPATIC ENZYME INCREASED [None]
  - INTESTINAL ISCHAEMIA [None]
  - LEUKOPENIA [None]
  - MULTI-ORGAN FAILURE [None]
  - THROMBOCYTOPENIA [None]
